FAERS Safety Report 4577778-X (Version None)
Quarter: 2005Q1

REPORT INFORMATION
  Report Type: 
  Country: None (occurrence: None)
  Receive Date: 20050209
  Receipt Date: 20050125
  Transmission Date: 20050727
  Serious: Yes (Other)
  Sender: FDA-Public Use
  Company Number: 2005BI001938

PATIENT
  Age: 54 Year
  Sex: Female
  Weight: 95.709 kg

DRUGS (2)
  1. AVONEX [Suspect]
     Indication: MULTIPLE SCLEROSIS
     Dosage: 30 UG QW IM
     Route: 030
     Dates: start: 20041220
  2. TENORMIN [Concomitant]

REACTIONS (4)
  - HYPERTENSION [None]
  - INFLUENZA LIKE ILLNESS [None]
  - INSOMNIA [None]
  - LOSS OF CONSCIOUSNESS [None]
